FAERS Safety Report 5572806-7 (Version None)
Quarter: 2007Q4

REPORT INFORMATION
  Report Type: 
  Country: None (occurrence: None)
  Receive Date: 20071223
  Receipt Date: 20071217
  Transmission Date: 20080405
  Serious: Yes (Hospitalization, Other)
  Sender: FDA-Public Use
  Company Number: PHBS2007BR21107

PATIENT
  Sex: Female

DRUGS (2)
  1. MALLOROL [Suspect]
     Dosage: 8 TABLETS
  2. ALCOHOL [Suspect]

REACTIONS (7)
  - ABNORMAL BEHAVIOUR [None]
  - AGITATION [None]
  - CONVULSION [None]
  - MIOSIS [None]
  - OVERDOSE [None]
  - SALIVARY HYPERSECRETION [None]
  - SOMNOLENCE [None]
